FAERS Safety Report 9887602 (Version 1)
Quarter: 2013Q4

REPORT INFORMATION
  Report Type: Spontaneous
  Country: US (occurrence: None)
  Receive Date: 20131223
  Receipt Date: 20131223
  Transmission Date: 20140711
  Serious: Yes (Other)
  Sender: FDA-Public Use
  Company Number: 220611LEO

PATIENT
  Age: 67 Year
  Sex: Male

DRUGS (1)
  1. PICATO GEL [Suspect]
     Indication: PHOTOSENSITIVITY REACTION
     Dosage: 1 IN 1 D, TOPICAL
     Dates: start: 20130216, end: 20130218

REACTIONS (5)
  - Application site paraesthesia [None]
  - Application site erythema [None]
  - Eye irritation [None]
  - Product measured potency issue [None]
  - Drug administered at inappropriate site [None]
